FAERS Safety Report 5104710-2 (Version None)
Quarter: 2006Q3

REPORT INFORMATION
  Report Type: 
  Country: None (occurrence: None)
  Receive Date: 20060914
  Receipt Date: 20060906
  Transmission Date: 20061208
  Serious: Yes (Other)
  Sender: FDA-Public Use
  Company Number: 2006UW17471

PATIENT
  Sex: Female

DRUGS (1)
  1. TAMOXIFEN CITRATE [Suspect]
     Indication: BREAST CANCER FEMALE
     Route: 048

REACTIONS (7)
  - ALOPECIA [None]
  - CATARACT [None]
  - DEPRESSION [None]
  - HOT FLUSH [None]
  - MULTIPLE FRACTURES [None]
  - OSTEOPOROSIS [None]
  - WEIGHT INCREASED [None]
